FAERS Safety Report 10402553 (Version 1)
Quarter: 2014Q3

REPORT INFORMATION
  Report Type: Spontaneous
  Country: US (occurrence: US)
  Receive Date: 20140822
  Receipt Date: 20140822
  Transmission Date: 20150326
  Serious: No
  Sender: FDA-Public Use
  Company Number: US-ASTRAZENECA-2013SE65947

PATIENT
  Age: 77 Year
  Sex: Female
  Weight: 43.1 kg

DRUGS (8)
  1. TEVATEN [Concomitant]
     Indication: TRANSIENT ISCHAEMIC ATTACK
  2. TEVATEN [Concomitant]
     Indication: BLOOD PRESSURE ABNORMAL
  3. SYMBICORT [Suspect]
     Active Substance: BUDESONIDE\FORMOTEROL FUMARATE DIHYDRATE
     Indication: CHRONIC OBSTRUCTIVE PULMONARY DISEASE
     Dosage: 160/4.5 MCG TWO PUFFS TWICE DAILY
     Route: 055
     Dates: start: 2011
  4. SPIRIVA [Concomitant]
     Active Substance: TIOTROPIUM BROMIDE MONOHYDRATE
     Indication: CHRONIC OBSTRUCTIVE PULMONARY DISEASE
  5. ZOCOR [Concomitant]
     Active Substance: SIMVASTATIN
  6. PLAVIX [Concomitant]
     Active Substance: CLOPIDOGREL BISULFATE
     Indication: TRANSIENT ISCHAEMIC ATTACK
  7. UNSPECIFIED BLOOD PRESSURE PILL [Concomitant]
  8. SYMBICORT [Suspect]
     Active Substance: BUDESONIDE\FORMOTEROL FUMARATE DIHYDRATE
     Indication: CHRONIC OBSTRUCTIVE PULMONARY DISEASE
     Dosage: 80/4.5 MCG TWO PUFFS TWICE DAILY
     Route: 055
     Dates: start: 2003, end: 2011

REACTIONS (11)
  - Weight decreased [Unknown]
  - Intentional product misuse [Unknown]
  - Dyspnoea [Unknown]
  - Gastrointestinal disorder [Unknown]
  - Gastrooesophageal reflux disease [Unknown]
  - Pulmonary function test decreased [Unknown]
  - Pain [Unknown]
  - Oral fungal infection [Unknown]
  - Circumstance or information capable of leading to medication error [Unknown]
  - Lung disorder [Unknown]
  - Oesophageal disorder [Unknown]

NARRATIVE: CASE EVENT DATE: 2011
